FAERS Safety Report 23130344 (Version 1)
Quarter: 2023Q4

REPORT INFORMATION
  Report Type: Spontaneous
  Country: US (occurrence: US)
  Receive Date: 20231031
  Receipt Date: 20231031
  Transmission Date: 20240110
  Serious: Yes (Other)
  Sender: FDA-Public Use
  Company Number: US-KRAMERLABS-2023-US-034150

PATIENT
  Age: 70 Year
  Sex: Female
  Weight: 58.06 kg

DRUGS (3)
  1. OPTI-NAIL 2-IN-1 [Suspect]
     Active Substance: TOLNAFTATE
     Indication: Product used for unknown indication
     Dosage: AS DIRECTED.
     Route: 061
     Dates: start: 202308, end: 20231016
  2. VITAMINS [Concomitant]
     Active Substance: VITAMINS
  3. IBANDRONATE SODIUM [Concomitant]
     Active Substance: IBANDRONATE SODIUM

REACTIONS (7)
  - Skin discolouration [Recovering/Resolving]
  - Skin exfoliation [Recovering/Resolving]
  - Pain of skin [Recovering/Resolving]
  - Skin tightness [Recovering/Resolving]
  - Skin weeping [Recovered/Resolved]
  - Pruritus [Recovering/Resolving]
  - Cellulitis [Recovering/Resolving]

NARRATIVE: CASE EVENT DATE: 20231009
